FAERS Safety Report 10655148 (Version 1)
Quarter: 2014Q4

REPORT INFORMATION
  Report Type: Report from Study
  Country: TN (occurrence: TN)
  Receive Date: 20141216
  Receipt Date: 20141216
  Transmission Date: 20150529
  Serious: Yes (Death)
  Sender: FDA-Public Use
  Company Number: TN-SA-2014SA170025

PATIENT
  Age: 79 Year
  Sex: Male

DRUGS (5)
  1. PLAVIX [Suspect]
     Active Substance: CLOPIDOGREL BISULFATE
     Indication: MYOCARDIAL INFARCTION
     Route: 048
     Dates: start: 20140410, end: 20140822
  2. CINCOR [Concomitant]
     Route: 048
  3. ASPIRIN. [Concomitant]
     Active Substance: ASPIRIN
     Route: 048
  4. ATOR [Concomitant]
     Active Substance: ATORVASTATIN CALCIUM
     Route: 048
  5. ISOPHANE INSULIN [Concomitant]
     Active Substance: INSULIN NOS
     Route: 058

REACTIONS (1)
  - Lung neoplasm malignant [Fatal]

NARRATIVE: CASE EVENT DATE: 2014
